FAERS Safety Report 20349657 (Version 1)
Quarter: 2022Q1

REPORT INFORMATION
  Report Type: Spontaneous
  Country: US (occurrence: US)
  Receive Date: 20220119
  Receipt Date: 20220119
  Transmission Date: 20220423
  Serious: Yes (Hospitalization)
  Sender: FDA-Public Use
  Company Number: None

PATIENT
  Age: 29 Year
  Sex: Female

DRUGS (17)
  1. LIDOCAINE [Suspect]
     Active Substance: LIDOCAINE
     Indication: Neuralgia
     Dosage: 2 MILLIGRAM/KILOGRAM (LOADING DOSE)
     Route: 040
  2. LIDOCAINE [Suspect]
     Active Substance: LIDOCAINE
     Dosage: 1 MILLIGRAM/KILOGRAM, QH (CONTINUOUS INFUSION)
     Route: 042
  3. LIDOCAINE [Suspect]
     Active Substance: LIDOCAINE
     Dosage: 1.6 MILLIGRAM/KILOGRAM, QH
     Route: 042
  4. LIDOCAINE [Suspect]
     Active Substance: LIDOCAINE
     Dosage: 1 MILLIGRAM/KILOGRAM, QH (CONTINUOUS INFUSION)
     Route: 042
  5. DEXAMETHASONE [Suspect]
     Active Substance: DEXAMETHASONE
     Indication: Spinal cord compression
     Dosage: 10 MILLIGRAM, QD
     Route: 042
  6. DEXAMETHASONE [Suspect]
     Active Substance: DEXAMETHASONE
     Indication: Neuralgia
     Dosage: 10 MILLIGRAM, Q8H
     Route: 042
  7. OLANZAPINE [Suspect]
     Active Substance: OLANZAPINE
     Indication: Hallucination
     Dosage: UNK, QD (AT NIGHT)
     Route: 065
  8. BUPIVACAINE [Suspect]
     Active Substance: BUPIVACAINE
     Indication: Neuralgia
     Dosage: 6.5 MILLIGRAM, QD (CONSTANT INFUSION; INTRATHECAL DRUG DELIVERY SYSTEM IMPLANTED)
     Route: 037
  9. HYDROMORPHONE [Concomitant]
     Active Substance: HYDROMORPHONE
     Indication: Neuralgia
     Dosage: UNK, PATIENT-CONTROLLED ANALGESIA (BOLUS)
  10. HYDROMORPHONE [Concomitant]
     Active Substance: HYDROMORPHONE
     Dosage: 2.5 MILLIGRAM EVERY 10 MINUTES (PRN)
     Route: 040
  11. HYDROMORPHONE [Concomitant]
     Active Substance: HYDROMORPHONE
     Indication: Neuralgia
     Dosage: 9.8 MILLIGRAM, QD (CONSTANT INFUSION; INTRATHECAL DRUG DELIVERY SYSTEM IMPLANTED)
     Route: 037
  12. KETAMINE [Concomitant]
     Active Substance: KETAMINE
     Indication: Neuralgia
     Dosage: 0.3 MILLIGRAM/KILOGRAM, QH (INFUSION)
  13. METHADONE [Concomitant]
     Active Substance: METHADONE HYDROCHLORIDE
     Indication: Neuralgia
     Dosage: UNK UNK, TID (20/20/30 MG; THREE TIMES A DAY)
     Route: 048
  14. ACETAMINOPHEN [Concomitant]
     Active Substance: ACETAMINOPHEN
     Indication: Neuralgia
     Dosage: 1000 MILLIGRAM, Q8H
     Route: 048
  15. DULOXETINE [Concomitant]
     Active Substance: DULOXETINE
     Indication: Neuralgia
     Dosage: 60 MILLIGRAM, QD
     Route: 048
  16. METHOCARBAMOL [Concomitant]
     Active Substance: METHOCARBAMOL
     Indication: Neuralgia
     Dosage: 750 MILLIGRAM, QID
     Route: 048
  17. FENTANYL [Concomitant]
     Active Substance: FENTANYL
     Indication: Neuralgia
     Dosage: PATIENT-CONTROLLED ANALGESIA UP TO A 150 UG IV PRN WITH A 25 UG/HOUR BASAL RATE/ 10 MINUTES
     Route: 040

REACTIONS (3)
  - Hoigne^s syndrome [Recovering/Resolving]
  - Delirium [Recovering/Resolving]
  - Drug ineffective [Unknown]
